FAERS Safety Report 8518457-3 (Version None)
Quarter: 2012Q3

REPORT INFORMATION
  Report Type: 
  Country: None (occurrence: None)
  Receive Date: 20120718
  Receipt Date: 20120319
  Transmission Date: 20120928
  Serious: No
  Sender: FDA-Public Use
  Company Number: US-BRISTOL-MYERS SQUIBB COMPANY-16461840

PATIENT
  Age: 71 Year
  Sex: Female

DRUGS (2)
  1. COUMADIN [Suspect]
     Dosage: DOSE INCREASED FROM 5MG TO 6MG ,7MG TO 8MG ,9MG TO 10MG
     Dates: start: 19950101
  2. WARFARIN SODIUM [Suspect]
     Dosage: START 10 YEARS AGO

REACTIONS (1)
  - FATIGUE [None]
